FAERS Safety Report 16979372 (Version 2)
Quarter: 2019Q4

REPORT INFORMATION
  Report Type: Report from Study
  Country: CA (occurrence: CA)
  Receive Date: 20191031
  Receipt Date: 20191211
  Transmission Date: 20200122
  Serious: Yes (Life-Threatening)
  Sender: FDA-Public Use
  Company Number: CA-JNJFOC-20191040072

PATIENT
  Age: 57 Year
  Sex: Female
  Weight: 80 kg

DRUGS (1)
  1. STELARA [Suspect]
     Active Substance: USTEKINUMAB
     Indication: CROHN^S DISEASE
     Route: 042
     Dates: start: 20191022

REACTIONS (4)
  - Infusion related reaction [Recovering/Resolving]
  - Throat tightness [Recovering/Resolving]
  - Type IV hypersensitivity reaction [Recovered/Resolved]
  - Hypertension [Unknown]

NARRATIVE: CASE EVENT DATE: 20191022
